FAERS Safety Report 12137037 (Version 1)
Quarter: 2016Q1

REPORT INFORMATION
  Report Type: Spontaneous
  Country: US (occurrence: None)
  Receive Date: 20160301
  Receipt Date: 20160301
  Transmission Date: 20160526
  Serious: No
  Sender: FDA-Public Use
  Company Number: None

PATIENT
  Age: 71 Year
  Sex: Male

DRUGS (1)
  1. STIVARGA [Suspect]
     Active Substance: REGORAFENIB
     Dosage: QD FOR 21 DAYS OUT OF 28
     Route: 048
     Dates: start: 20150821, end: 20160226

REACTIONS (3)
  - Muscle spasms [None]
  - Rash generalised [None]
  - Dysphonia [None]

NARRATIVE: CASE EVENT DATE: 20150821
